FAERS Safety Report 6970943-3 (Version None)
Quarter: 2010Q3

REPORT INFORMATION
  Report Type: 
  Country: None (occurrence: None)
  Receive Date: 20100824
  Receipt Date: 20091216
  Transmission Date: 20110219
  Serious: Yes (Hospitalization)
  Sender: FDA-Public Use
  Company Number: 2009311640

PATIENT
  Age: 55 Year
  Sex: Female

DRUGS (4)
  1. AMLODIPINE BESYLATE [Suspect]
     Indication: HYPERTENSION
  2. METOPROLOL TARTRATE [Suspect]
     Indication: HYPERTENSION
     Dates: start: 20091105
  3. PROTONIX [Suspect]
     Indication: GASTROOESOPHAGEAL REFLUX DISEASE
     Dosage: 40 MG, 1X/DAY, ORAL
     Route: 048
     Dates: start: 20091105
  4. ACETYLSALICYLIC ACID (ACETYSALICYCLIC ACID) [Concomitant]

REACTIONS (1)
  - CHEST PAIN [None]
